FAERS Safety Report 22215315 (Version 1)
Quarter: 2023Q2

REPORT INFORMATION
  Report Type: Spontaneous
  Country: US (occurrence: US)
  Receive Date: 20230415
  Receipt Date: 20230415
  Transmission Date: 20230721
  Serious: No
  Sender: FDA-Public Use
  Company Number: US-JNJFOC-20200320108

PATIENT
  Sex: Male
  Weight: 85.806 kg

DRUGS (1)
  1. IMODIUM MULTI-SYMPTOM RELIEF [Suspect]
     Active Substance: DIMETHICONE\LOPERAMIDE HYDROCHLORIDE
     Indication: Anal incontinence
     Dosage: 2 CAPLETS TWICE  A DAY
     Route: 048
     Dates: start: 20200305, end: 20200311

REACTIONS (2)
  - Product use in unapproved indication [Unknown]
  - Off label use [Unknown]
